FAERS Safety Report 8798534 (Version 1)
Quarter: 2012Q4

REPORT INFORMATION
  Report Type: Report from Study
  Country: JP (occurrence: JP)
  Receive Date: 20120920
  Receipt Date: 20120920
  Transmission Date: 20130627
  Serious: Yes (Other)
  Sender: FDA-Public Use
  Company Number: JP-VERTEX PHARMACEUTICAL INC.-AE-2012-007593

PATIENT
  Age: 61 Year
  Sex: Female

DRUGS (11)
  1. VX-950 [Suspect]
     Indication: HEPATITIS C
     Dosage: 2250 mg, qd
     Route: 048
     Dates: start: 20120319, end: 20120329
  2. VX-950 [Suspect]
     Dosage: 1500 mg, qd
     Route: 048
     Dates: start: 20120330, end: 20120410
  3. RIBAVIRIN [Suspect]
     Indication: HEPATITIS C
     Dosage: 600 mg, qd
     Route: 048
     Dates: start: 20120319, end: 20120410
  4. PEGINTERFERON ALFA-2B [Suspect]
     Indication: HEPATITIS C
     Dosage: 1.5 UNK, UNK
     Route: 058
     Dates: start: 20120319, end: 20120325
  5. PEGINTERFERON ALFA-2B [Suspect]
     Dosage: 0.75 UNK, UNK
     Route: 058
     Dates: start: 20120326, end: 20120409
  6. URSO                               /00465701/ [Concomitant]
     Dosage: 900 mg, qd
     Route: 048
  7. LIVACT                             /00847901/ [Concomitant]
     Dosage: 3 DF, qd
     Route: 048
  8. TAKEPRON [Concomitant]
     Dosage: 15 mg, qd
     Route: 048
  9. NORVASC [Concomitant]
     Dosage: 5 mg, qd
     Route: 048
  10. FLUITRAN [Concomitant]
     Dosage: 2 mg, qd
     Route: 048
  11. BROTIZOLAN [Concomitant]
     Dosage: 0.25 mg, qd
     Route: 048

REACTIONS (1)
  - Ascites [Recovered/Resolved]
